FAERS Safety Report 17968528 (Version 6)
Quarter: 2020Q3

REPORT INFORMATION
  Report Type: Spontaneous
  Country: CO (occurrence: CO)
  Receive Date: 20200701
  Receipt Date: 20200803
  Transmission Date: 20201103
  Serious: Yes (Death, Hospitalization, Other)
  Sender: FDA-Public Use
  Company Number: CO-GLAXOSMITHKLINE-CO2020AMR102553

PATIENT
  Age: 53 Year
  Sex: Female
  Weight: 80 kg

DRUGS (10)
  1. BELIMUMAB [Suspect]
     Active Substance: BELIMUMAB
     Dosage: 400 MG, Z (14 DAYS)
     Route: 058
     Dates: start: 20200610
  2. PREDNISOLONE. [Concomitant]
     Active Substance: PREDNISOLONE
     Indication: PRODUCT USED FOR UNKNOWN INDICATION
     Dosage: UNK
  3. COLCHICINE. [Concomitant]
     Active Substance: COLCHICINE
     Indication: SYSTEMIC LUPUS ERYTHEMATOSUS
     Dosage: 0.5 MG
  4. ENALAPRIL [Concomitant]
     Active Substance: ENALAPRIL
     Indication: SYSTEMIC LUPUS ERYTHEMATOSUS
     Dosage: 5 MG
  5. BELIMUMAB [Suspect]
     Active Substance: BELIMUMAB
     Indication: SYSTEMIC LUPUS ERYTHEMATOSUS
     Dosage: 400 MG, Z (14 DAYS)
     Route: 058
     Dates: start: 20200526
  6. BELIMUMAB [Suspect]
     Active Substance: BELIMUMAB
     Dosage: 400 MG, Z (14 DAYS)
     Route: 058
     Dates: start: 20200624
  7. AZATHIOPRINE. [Concomitant]
     Active Substance: AZATHIOPRINE
     Indication: PRODUCT USED FOR UNKNOWN INDICATION
     Dosage: UNK
  8. METOTREXATE [Concomitant]
     Active Substance: METHOTREXATE SODIUM
     Indication: PRODUCT USED FOR UNKNOWN INDICATION
     Dosage: UNK
  9. CICLOSPORIN [Concomitant]
     Active Substance: CYCLOSPORINE
     Indication: SYSTEMIC LUPUS ERYTHEMATOSUS
     Dosage: 50 MG
  10. ACETAMINOPHEN. [Concomitant]
     Active Substance: ACETAMINOPHEN
     Indication: SYSTEMIC LUPUS ERYTHEMATOSUS
     Dosage: UNK

REACTIONS (27)
  - Respiratory failure [Unknown]
  - Syncope [Unknown]
  - Cardiac failure [Unknown]
  - Asthenia [Unknown]
  - Haemorrhage [Fatal]
  - Sepsis [Fatal]
  - Hepatic failure [Unknown]
  - Joint swelling [Unknown]
  - Central nervous system infection [Unknown]
  - Medical induction of coma [Unknown]
  - Loss of consciousness [Unknown]
  - Nausea [Unknown]
  - Skin discolouration [Unknown]
  - Renal failure [Unknown]
  - Platelet count decreased [Recovering/Resolving]
  - Septic shock [Fatal]
  - Thrombocytopenia [Unknown]
  - Leukopenia [Unknown]
  - Deep vein thrombosis [Unknown]
  - Multiple organ dysfunction syndrome [Fatal]
  - Peripheral swelling [Unknown]
  - Condition aggravated [Unknown]
  - Ill-defined disorder [Unknown]
  - Anaemia [Unknown]
  - Antiphospholipid syndrome [Unknown]
  - Sepsis [Unknown]
  - General physical health deterioration [Unknown]

NARRATIVE: CASE EVENT DATE: 20200616
